FAERS Safety Report 6645057-2 (Version None)
Quarter: 2010Q1

REPORT INFORMATION
  Report Type: 
  Country: None (occurrence: None)
  Receive Date: 20100317
  Receipt Date: 20100304
  Transmission Date: 20100710
  Serious: Yes (Other)
  Sender: FDA-Public Use
  Company Number: 2010PL000026

PATIENT
  Age: 71 Year
  Sex: Male

DRUGS (17)
  1. IMURAN [Suspect]
     Indication: IDIOPATHIC PULMONARY FIBROSIS
     Dosage: 50 MG; TID
     Dates: start: 20080321, end: 20100107
  2. INVESTIGATIONAL DRUG [Suspect]
     Indication: IDIOPATHIC PULMONARY FIBROSIS
     Dosage: 9 CAPS; QD
  3. COUMADIN /00014802/ (CON.) [Concomitant]
  4. LOSARTAN (CON.) [Concomitant]
  5. FUROSEMIDE (CON.) [Concomitant]
  6. METOLAZONE (CON.) [Concomitant]
  7. METOPROLOL (CON.) [Concomitant]
  8. GABAPENTIN (CON.) [Concomitant]
  9. AMLODIPINE (CON.) [Concomitant]
  10. POTASSIUM (CON.) [Concomitant]
  11. BACTRIM /00086101/ (CON.) [Concomitant]
  12. ATROVENT N (CON.) [Concomitant]
  13. ACETAMINOPHEN (CON.) [Concomitant]
  14. ASPIRIN /00002701/ (CON.) [Concomitant]
  15. DOCUSATE SODIUM (CON.) [Concomitant]
  16. OMEPRAZOLE (CON.) [Concomitant]
  17. SIMVASTATIN (CON.) [Concomitant]

REACTIONS (6)
  - BLOOD AMYLASE DECREASED [None]
  - BLOOD BICARBONATE INCREASED [None]
  - BLOOD CHLORIDE DECREASED [None]
  - BLOOD GLUCOSE INCREASED [None]
  - BLOOD TRIGLYCERIDES INCREASED [None]
  - NEUTROPHIL PERCENTAGE INCREASED [None]
